FAERS Safety Report 18684026 (Version 1)
Quarter: 2020Q4

REPORT INFORMATION
  Report Type: Spontaneous
  Country: US (occurrence: US)
  Receive Date: 20201230
  Receipt Date: 20201230
  Transmission Date: 20210114
  Serious: Yes (Congenital Anomaly)
  Sender: FDA-Public Use
  Company Number: US-BIOMARINAP-US-2020-128368

PATIENT

DRUGS (1)
  1. KUVAN [Suspect]
     Active Substance: SAPROPTERIN DIHYDROCHLORIDE
     Dosage: 17 KILOGRAM, QD
     Route: 064
     Dates: start: 2008

REACTIONS (1)
  - Congenital megacolon [Unknown]

NARRATIVE: CASE EVENT DATE: 20190705
